FAERS Safety Report 23897430 (Version 1)
Quarter: 2024Q2

REPORT INFORMATION
  Report Type: Spontaneous
  Country: US (occurrence: US)
  Receive Date: 20240524
  Receipt Date: 20240524
  Transmission Date: 20240716
  Serious: No
  Sender: FDA-Public Use
  Company Number: US-FreseniusKabi-FK202407855

PATIENT
  Sex: Male

DRUGS (1)
  1. SODIUM CHLORIDE [Suspect]
     Active Substance: SODIUM CHLORIDE
     Indication: Fluid replacement
     Dosage: FORM OF ADMIN: INJECTION FOR INFUSION?DOSE: ASKED BUT UNKNOWN
     Route: 042

REACTIONS (4)
  - Product monitoring error [Recovered/Resolved]
  - Dysgeusia [Recovered/Resolved]
  - Frustration tolerance decreased [Recovered/Resolved]
  - Circumstance or information capable of leading to medication error [Recovered/Resolved]
